FAERS Safety Report 15044690 (Version 1)
Quarter: 2018Q2

REPORT INFORMATION
  Report Type: Spontaneous
  Country: US (occurrence: US)
  Receive Date: 20180531
  Receipt Date: 20180531
  Transmission Date: 20180711
  Serious: Yes (Hospitalization)
  Sender: FDA-Public Use
  Company Number: None

PATIENT
  Age: 84 Year
  Sex: Female

DRUGS (1)
  1. OPSUMIT [Suspect]
     Active Substance: MACITENTAN
     Indication: PULMONARY ARTERIAL HYPERTENSION
     Route: 048
     Dates: start: 20171027

REACTIONS (9)
  - Cardiac failure [None]
  - Mental status changes [None]
  - Klebsiella infection [None]
  - Gait inability [None]
  - Culture urine positive [None]
  - Diabetic neuropathy [None]
  - Hyperkalaemia [None]
  - Dysstasia [None]
  - Muscular weakness [None]

NARRATIVE: CASE EVENT DATE: 20180512
